FAERS Safety Report 4606271-0 (Version None)
Quarter: 2005Q1

REPORT INFORMATION
  Report Type: 
  Country: None (occurrence: None)
  Receive Date: 20050311
  Receipt Date: 20050303
  Transmission Date: 20050727
  Serious: Yes (Hospitalization, Other)
  Sender: FDA-Public Use
  Company Number: CA-ABBOTT-05P-028-0292903-00

PATIENT
  Sex: Female

DRUGS (2)
  1. BIAXIN [Suspect]
     Indication: INFECTION
     Route: 048
  2. ANTIDIABETIC TREATMENT [Concomitant]
     Indication: DIABETES MELLITUS

REACTIONS (1)
  - HYPOGLYCAEMIC COMA [None]
